FAERS Safety Report 10548746 (Version 1)
Quarter: 2014Q4

REPORT INFORMATION
  Report Type: Spontaneous
  Country: IN (occurrence: IN)
  Receive Date: 20141028
  Receipt Date: 20141028
  Transmission Date: 20150529
  Serious: Yes (Other)
  Sender: FDA-Public Use
  Company Number: IN-BAYER-2014-154353

PATIENT
  Age: 32 Year
  Sex: Female

DRUGS (6)
  1. ATORVASTATIN [Concomitant]
     Active Substance: ATORVASTATIN
  2. ACETYLSALICYLIC ACID (} 100 MG) [Suspect]
     Active Substance: ASPIRIN
  3. CLOPIDOGREL [Suspect]
     Active Substance: CLOPIDOGREL BISULFATE
  4. FENOFIBRATE. [Concomitant]
     Active Substance: FENOFIBRATE
  5. MYCOPHENOLATE SODIUM [Concomitant]
     Active Substance: MYCOPHENOLATE SODIUM
  6. PREDNISOLONE. [Concomitant]
     Active Substance: PREDNISOLONE
     Dosage: TAPERING DOSES

REACTIONS (7)
  - Blindness transient [Recovering/Resolving]
  - Cerebral haemorrhage [None]
  - Hypoaesthesia [None]
  - Cerebral infarction [None]
  - Aortic occlusion [None]
  - Retinal haemorrhage [None]
  - Vomiting [None]
